APPROVED DRUG PRODUCT: LETROZOLE
Active Ingredient: LETROZOLE
Strength: 2.5MG
Dosage Form/Route: TABLET;ORAL
Application: A203796 | Product #001
Applicant: HIKMA PHARMACEUTICALS
Approved: Jun 3, 2016 | RLD: No | RS: No | Type: DISCN